FAERS Safety Report 8225856-6 (Version None)
Quarter: 2012Q1

REPORT INFORMATION
  Report Type: 
  Country: None (occurrence: None)
  Receive Date: 20120321
  Receipt Date: 20120315
  Transmission Date: 20120608
  Serious: Yes (Hospitalization, Other)
  Sender: FDA-Public Use
  Company Number: US-PFIZER INC-2010062994

PATIENT
  Sex: Female
  Weight: 90.703 kg

DRUGS (17)
  1. ASCORBIC ACID [Concomitant]
     Dosage: UNK
  2. LYRICA [Suspect]
     Indication: FIBROMYALGIA
     Dosage: 75 MG, 2X/DAY
  3. LYRICA [Suspect]
     Dosage: 25 MG, 3X/DAY
     Route: 048
     Dates: start: 20080201
  4. CELEBREX [Suspect]
     Indication: ARTHRALGIA
  5. VITAMIN D [Concomitant]
     Dosage: UNK
  6. DETROL LA [Suspect]
     Indication: MICTURITION DISORDER
     Dosage: UNK
  7. CELEBREX [Suspect]
     Indication: ARTHRITIS
     Dosage: 200 MG, 1X/DAY
     Dates: end: 20110101
  8. ACETYLSALICYLIC ACID SRT [Suspect]
     Indication: ANTICOAGULANT THERAPY
     Dosage: 81 MG, 1X/DAY
     Dates: start: 20010101, end: 20110228
  9. FLEXERIL [Concomitant]
     Dosage: UNK
  10. CALCIUM WITH VITAMIN D [Concomitant]
     Dosage: UNK
  11. GLUCOSAMINE [Concomitant]
     Dosage: UNK
  12. CELEBREX [Suspect]
     Indication: BACK PAIN
     Dosage: 200 MG, 2X/DAY
  13. ATENOLOL [Concomitant]
     Indication: HYPERTENSION
     Dosage: 50 MG, DAILY
  14. ZINC [Concomitant]
     Dosage: UNK
  15. PROTONIX [Concomitant]
     Indication: GASTRIC DISORDER
     Dosage: 40 MG, UNK
  16. VITAMIN E [Concomitant]
     Dosage: UNK
  17. FISH OIL [Concomitant]
     Dosage: UNK

REACTIONS (11)
  - CHEST PAIN [None]
  - NERVE INJURY [None]
  - ABDOMINAL DISCOMFORT [None]
  - COLON CANCER [None]
  - NAUSEA [None]
  - WEIGHT DECREASED [None]
  - GASTROINTESTINAL ULCER HAEMORRHAGE [None]
  - DYSPEPSIA [None]
  - JAW DISORDER [None]
  - DIARRHOEA [None]
  - ROTATOR CUFF SYNDROME [None]
